FAERS Safety Report 13814618 (Version 1)
Quarter: 2017Q3

REPORT INFORMATION
  Report Type: Spontaneous
  Country: US (occurrence: US)
  Receive Date: 20170729
  Receipt Date: 20170729
  Transmission Date: 20171127
  Serious: Yes (Hospitalization)
  Sender: FDA-Public Use
  Company Number: None

PATIENT
  Age: 68 Year
  Sex: Female

DRUGS (13)
  1. DILAUDID [Concomitant]
     Active Substance: HYDROMORPHONE HYDROCHLORIDE
  2. ALBUTEROL. [Concomitant]
     Active Substance: ALBUTEROL
  3. DEXILANT [Concomitant]
     Active Substance: DEXLANSOPRAZOLE
  4. POTASSIUM [Concomitant]
     Active Substance: POTASSIUM
  5. FLOVENT HFA [Concomitant]
     Active Substance: FLUTICASONE PROPIONATE
  6. IRON [Concomitant]
     Active Substance: IRON
  7. PREDNISONE. [Concomitant]
     Active Substance: PREDNISONE
  8. NASONEX [Concomitant]
     Active Substance: MOMETASONE FUROATE
  9. DIAZEPAM. [Concomitant]
     Active Substance: DIAZEPAM
  10. BREO ELLIPTA INH [Concomitant]
  11. NUCALA [Suspect]
     Active Substance: MEPOLIZUMAB
     Indication: ASTHMA
     Route: 058
     Dates: start: 20160809
  12. METOPROLOL TARTRATE. [Concomitant]
     Active Substance: METOPROLOL TARTRATE
  13. WARFARIN [Concomitant]
     Active Substance: WARFARIN

REACTIONS (3)
  - Angina pectoris [None]
  - Influenza [None]
  - Cardiac disorder [None]

NARRATIVE: CASE EVENT DATE: 20170708
